FAERS Safety Report 8809267 (Version 2)
Quarter: 2012Q4

REPORT INFORMATION
  Report Type: Report from Study
  Country: BE (occurrence: BE)
  Receive Date: 20120926
  Receipt Date: 20121126
  Transmission Date: 20130627
  Serious: Yes (Hospitalization)
  Sender: FDA-Public Use
  Company Number: BE-EISAI INC-E7389-02667-CLI-BE

PATIENT
  Age: 55 Year
  Sex: Female
  Weight: 101 kg

DRUGS (12)
  1. E7389 (BOLD) [Suspect]
     Indication: BREAST CANCER
     Route: 041
     Dates: start: 20120531
  2. DEXAMETHASONE [Concomitant]
     Route: 048
  3. DEPAKINE [Concomitant]
     Route: 048
  4. DAFALGAN [Concomitant]
     Route: 048
  5. SIMVASTATIN [Concomitant]
     Route: 048
  6. ASAFLOW [Concomitant]
     Route: 065
  7. NOVONORM [Concomitant]
     Route: 048
  8. MOXONIDINE [Concomitant]
     Route: 065
  9. TRAMADOL [Concomitant]
     Route: 048
  10. VASEXTEN [Concomitant]
     Route: 048
  11. DOMPERIDONE [Concomitant]
     Route: 048
  12. PANTOMED [Concomitant]
     Route: 048

REACTIONS (2)
  - Epilepsy [Recovered/Resolved with Sequelae]
  - Febrile neutropenia [Recovered/Resolved with Sequelae]
